FAERS Safety Report 10629705 (Version 1)
Quarter: 2014Q4

REPORT INFORMATION
  Report Type: Spontaneous
  Country: US (occurrence: US)
  Receive Date: 20141205
  Receipt Date: 20141205
  Transmission Date: 20150529
  Serious: No
  Sender: FDA-Public Use
  Company Number: US-BRISTOL-MYERS SQUIBB COMPANY-20619177

PATIENT
  Sex: Female

DRUGS (4)
  1. METFORMIN HCL [Suspect]
     Active Substance: METFORMIN HYDROCHLORIDE
  2. VICTOZA [Suspect]
     Active Substance: LIRAGLUTIDE
  3. GLIMEPIRIDE. [Suspect]
     Active Substance: GLIMEPIRIDE
  4. ASPIRIN. [Suspect]
     Active Substance: ASPIRIN

REACTIONS (5)
  - Blood glucose increased [Unknown]
  - Nausea [Unknown]
  - Headache [Unknown]
  - Contusion [Unknown]
  - Haemorrhage [Unknown]
